FAERS Safety Report 16902095 (Version 1)
Quarter: 2019Q4

REPORT INFORMATION
  Report Type: Spontaneous
  Country: FR (occurrence: FR)
  Receive Date: 20191010
  Receipt Date: 20191010
  Transmission Date: 20200122
  Serious: Yes (Hospitalization)
  Sender: FDA-Public Use
  Company Number: FR-TEVA-2019-FR-1119252

PATIENT
  Age: 62 Year
  Sex: Male
  Weight: 78.8 kg

DRUGS (6)
  1. CACIT VITAMINE D3 [Concomitant]
     Active Substance: CALCIUM CARBONATE\CHOLECALCIFEROL
     Indication: CALCIUM DEFICIENCY
     Dosage: 2 DOSAGE FORMS DAILY; (ONGOING TREATMENT)
     Route: 048
     Dates: start: 20190831
  2. PREDNISOLONE TEVA 20 MG [Suspect]
     Active Substance: PREDNISOLONE
     Indication: TEMPORAL ARTERITIS
     Dosage: 80 MILLIGRAM DAILY;
     Dates: start: 20190910
  3. TRAMADOL HYDROCHLORIDE. [Concomitant]
     Active Substance: TRAMADOL HYDROCHLORIDE
     Indication: PAIN
     Dosage: 50 MG 1 DOSAGE FORM IF NEEDED (LONG-TERM TREATMENT)
     Route: 048
  4. ALPRAZOLAM 0.25MG [Concomitant]
     Active Substance: ALPRAZOLAM
     Indication: ANXIETY
     Dosage: 1 DOSAGE FORM IF NEEDED (LONG-TERM TREATMENT)
     Route: 048
  5. KARDEGIC [Concomitant]
     Active Substance: ASPIRIN DL-LYSINE
     Indication: TEMPORAL ARTERITIS
     Dosage: 75 MILLIGRAM DAILY;
     Route: 048
  6. PARACETAMOL [Concomitant]
     Active Substance: ACETAMINOPHEN
     Indication: PAIN
     Dosage: 4 GRAM DAILY; (LONG-TERM TREATMENT)
     Route: 048

REACTIONS (8)
  - Headache [Recovering/Resolving]
  - Therapeutic response decreased [Unknown]
  - Myalgia [Recovering/Resolving]
  - Muscle spasms [Recovering/Resolving]
  - Electric shock [Recovering/Resolving]
  - Pyrexia [Recovering/Resolving]
  - Vision blurred [Recovering/Resolving]
  - Product supply issue [Unknown]

NARRATIVE: CASE EVENT DATE: 20190910
